FAERS Safety Report 9674841 (Version 6)
Quarter: 2014Q2

REPORT INFORMATION
  Report Type: Report from Study
  Country: DE (occurrence: DE)
  Receive Date: 20131107
  Receipt Date: 20140430
  Transmission Date: 20141212
  Serious: Yes (Hospitalization)
  Sender: FDA-Public Use
  Company Number: PHHY2013DE123837

PATIENT
  Sex: Female
  Weight: 69 kg

DRUGS (14)
  1. AFINITOR [Suspect]
     Indication: BREAST CANCER METASTATIC
     Dosage: 10 MG, QD
     Route: 048
     Dates: start: 20130829, end: 20130829
  2. AFINITOR [Suspect]
     Dosage: 10 MG, QD
     Route: 048
     Dates: start: 20131017, end: 20131023
  3. EXEMESTANE [Suspect]
     Indication: BREAST CANCER METASTATIC
     Dosage: 25 MG, QD
     Route: 048
     Dates: start: 20130829, end: 20131023
  4. SPIRONOLACTONE [Suspect]
     Dosage: 25 MG, QD IN THE MORNNG
     Dates: start: 201302
  5. HYDROCHLOROTHIAZIDE [Suspect]
     Dosage: 12.5 MG, QD IN MORNING
     Dates: start: 201302
  6. ARCOXIA [Suspect]
     Dosage: 90 MG, QD
     Dates: start: 201302
  7. ZOMETA [Suspect]
     Dosage: 4 MG, QMO
     Dates: start: 20130213
  8. CORDINATE [Concomitant]
     Dosage: 80 MG, QD
  9. PANTOPRAZOLE [Concomitant]
     Dosage: 40 MG, DAILY
  10. CIPRALEX [Concomitant]
     Dosage: 10 MG, QD
  11. LOCOL [Concomitant]
     Dosage: 80 MG, QD
  12. BISOPROLOL FUMARATE [Concomitant]
     Dosage: 5 MG, QD
  13. BISPHOSPHONATES [Concomitant]
     Indication: PROPHYLAXIS
  14. ANALGESICS [Concomitant]

REACTIONS (9)
  - Renal failure acute [Recovered/Resolved with Sequelae]
  - Blood creatinine increased [Unknown]
  - Urine output decreased [Unknown]
  - Blister [Recovered/Resolved]
  - Pancytopenia [Not Recovered/Not Resolved]
  - Anaemia [Not Recovered/Not Resolved]
  - Thrombocytopenia [Recovered/Resolved]
  - Leukopenia [Recovered/Resolved]
  - Visual impairment [Recovered/Resolved]
